FAERS Safety Report 4719314-0 (Version None)
Quarter: 2005Q3

REPORT INFORMATION
  Report Type: 
  Country: None (occurrence: None)
  Receive Date: 20050721
  Receipt Date: 20050210
  Transmission Date: 20060218
  Serious: No
  Sender: FDA-Public Use
  Company Number: US-GLAXOSMITHKLINE-A0544957A

PATIENT
  Age: 37 Year
  Sex: Male

DRUGS (3)
  1. MALARONE [Suspect]
     Indication: MALARIA
     Dosage: 250MG PER DAY
     Route: 048
     Dates: start: 20020901
  2. MULTIVIT [Concomitant]
  3. LARIAM [Concomitant]

REACTIONS (1)
  - MALARIA [None]
